FAERS Safety Report 4582465-8 (Version None)
Quarter: 2005Q1

REPORT INFORMATION
  Report Type: 
  Country: None (occurrence: None)
  Receive Date: 20050214
  Receipt Date: 20050203
  Transmission Date: 20050727
  Serious: Yes (Other)
  Sender: FDA-Public Use
  Company Number: K200500193

PATIENT
  Age: 27 Year
  Sex: Female

DRUGS (1)
  1. ADRENALIN CHLORIDE SOLUTION (EPINEPHRINE) INJECTION, 1 [Suspect]
     Indication: HYPERSENSITIVITY
     Dosage: 1 AMP OF 1:1000, SINGLE, INTRAVENOUS
     Route: 042
     Dates: start: 20040101, end: 20040101

REACTIONS (3)
  - ARTHROPOD STING [None]
  - CEREBROVASCULAR ACCIDENT [None]
  - HYPOTENSION [None]
